FAERS Safety Report 6542351-0 (Version None)
Quarter: 2010Q1

REPORT INFORMATION
  Report Type: 
  Country: None (occurrence: None)
  Receive Date: 20100114
  Receipt Date: 20100114
  Transmission Date: 20100710
  Serious: Yes (Other)
  Sender: FDA-Public Use
  Company Number: None

PATIENT
  Age: 63 Year
  Sex: Male
  Weight: 91.173 kg

DRUGS (1)
  1. ACYCLOVIR [Suspect]
     Indication: HERPES ZOSTER
     Dosage: 850 MG EVERY 8 HOURS IV
     Route: 042
     Dates: start: 20100107, end: 20100108

REACTIONS (2)
  - NEPHROPATHY [None]
  - RENAL FAILURE [None]
